FAERS Safety Report 7233555-2 (Version None)
Quarter: 2011Q1

REPORT INFORMATION
  Report Type: 
  Country: None (occurrence: None)
  Receive Date: 20110119
  Receipt Date: 20100520
  Transmission Date: 20110831
  Serious: Yes (Hospitalization, Other)
  Sender: FDA-Public Use
  Company Number: US-TEVA-235303USA

PATIENT
  Sex: Female

DRUGS (1)
  1. COPAXONE [Suspect]
     Indication: MULTIPLE SCLEROSIS
     Route: 058

REACTIONS (7)
  - URINARY INCONTINENCE [None]
  - AGEUSIA [None]
  - SENSORY LOSS [None]
  - ABASIA [None]
  - FAECAL INCONTINENCE [None]
  - DYSSTASIA [None]
  - MULTIPLE SCLEROSIS RELAPSE [None]
